FAERS Safety Report 25754219 (Version 1)
Quarter: 2025Q3

REPORT INFORMATION
  Report Type: Spontaneous
  Country: US (occurrence: US)
  Receive Date: 20250903
  Receipt Date: 20250903
  Transmission Date: 20251020
  Serious: Yes (Other)
  Sender: CHATTEM
  Company Number: US-OPELLA-2025OHG026437

PATIENT
  Sex: Female

DRUGS (1)
  1. DULCOLAX (BISACODYL) [Suspect]
     Active Substance: BISACODYL
     Indication: Product used for unknown indication
     Route: 048

REACTIONS (6)
  - Choking [Unknown]
  - Drug dependence [Unknown]
  - Product outer packaging issue [Unknown]
  - Product use complaint [Unknown]
  - Therapeutic product effect variable [Unknown]
  - Product use issue [Unknown]
